FAERS Safety Report 9144138 (Version 10)
Quarter: 2019Q2

REPORT INFORMATION
  Report Type: Report from Study
  Country: BR (occurrence: BR)
  Receive Date: 20130306
  Receipt Date: 20190412
  Transmission Date: 20190711
  Serious: Yes (Hospitalization, Disabling, Other)
  Sender: FDA-Public Use
  Company Number: BR-ROCHE-1083016

PATIENT
  Age: 47 Year
  Sex: Female
  Weight: 78 kg

DRUGS (47)
  1. INDAPEN [Concomitant]
     Active Substance: INDAPAMIDE
     Route: 065
  2. ATENOLOL. [Concomitant]
     Active Substance: ATENOLOL
     Indication: HYPERTENSION
     Route: 065
  3. FLUOXETINE [Concomitant]
     Active Substance: FLUOXETINE HYDROCHLORIDE
     Route: 065
  4. CLONAZEPAM. [Concomitant]
     Active Substance: CLONAZEPAM
     Indication: DEPRESSION
     Route: 065
  5. GLIFAGE [Concomitant]
     Active Substance: METFORMIN HYDROCHLORIDE
     Indication: DIABETES MELLITUS
     Route: 065
  6. OMEPRAZOL [Concomitant]
     Active Substance: OMEPRAZOLE
     Indication: ANXIETY
  7. QUETIAPINE. [Concomitant]
     Active Substance: QUETIAPINE
     Indication: DEPRESSION
     Route: 065
  8. VONAU [Concomitant]
     Active Substance: ONDANSETRON HYDROCHLORIDE
     Indication: NAUSEA
  9. SIMVASTATIN. [Concomitant]
     Active Substance: SIMVASTATIN
     Route: 065
  10. CHLOROQUINE. [Concomitant]
     Active Substance: CHLOROQUINE
  11. TORVAL CR [Concomitant]
     Active Substance: VALPROATE SODIUM
     Indication: SEIZURE
  12. ATENOLOL. [Concomitant]
     Active Substance: ATENOLOL
     Route: 065
  13. PREDSIM [Concomitant]
     Active Substance: PREDNISOLONE
     Route: 065
  14. DEPAKENE [Concomitant]
     Active Substance: VALPROIC ACID
     Route: 065
  15. ALLEGRA [Concomitant]
     Active Substance: FEXOFENADINE HYDROCHLORIDE
     Indication: PREMEDICATION
  16. MELOXICAM. [Concomitant]
     Active Substance: MELOXICAM
     Indication: FIBROMYALGIA
  17. AZATHIOPRINE. [Concomitant]
     Active Substance: AZATHIOPRINE
  18. PREBICTAL [Concomitant]
     Active Substance: PREGABALIN
  19. OMEPRAZOL [Concomitant]
     Active Substance: OMEPRAZOLE
     Indication: DEPRESSION
     Route: 065
  20. METFORMIN [Concomitant]
     Active Substance: METFORMIN HYDROCHLORIDE
     Indication: DIABETES MELLITUS
     Route: 065
  21. CLONAZEPAM. [Concomitant]
     Active Substance: CLONAZEPAM
     Indication: ANXIETY
  22. COLCHICINE. [Concomitant]
     Active Substance: COLCHICINE
     Route: 065
  23. SIMVASTATIN. [Concomitant]
     Active Substance: SIMVASTATIN
     Indication: BLOOD CHOLESTEROL ABNORMAL
     Route: 065
  24. METOCLOPRAMIDE. [Concomitant]
     Active Substance: METOCLOPRAMIDE
     Indication: NAUSEA
     Route: 065
  25. METOCLOPRAMIDE. [Concomitant]
     Active Substance: METOCLOPRAMIDE
     Indication: GASTRIC DISORDER
  26. MABTHERA [Suspect]
     Active Substance: RITUXIMAB
     Indication: RHEUMATOID ARTHRITIS
     Route: 042
     Dates: start: 201008
  27. MABTHERA [Suspect]
     Active Substance: RITUXIMAB
     Route: 042
     Dates: start: 201107
  28. DIAZEPAM. [Concomitant]
     Active Substance: DIAZEPAM
     Route: 065
  29. DEPAKENE [Concomitant]
     Active Substance: VALPROIC ACID
     Indication: SEIZURE
     Route: 065
  30. CORTISONE [Concomitant]
     Active Substance: CORTISONE\HYDROCORTISONE
     Indication: PREMEDICATION
  31. FOLIC ACID. [Concomitant]
     Active Substance: FOLIC ACID
     Route: 065
  32. DEPURA [Concomitant]
     Active Substance: CHOLECALCIFEROL
     Route: 065
  33. MABTHERA [Suspect]
     Active Substance: RITUXIMAB
     Dosage: LATEST RECEIVED INFUSION:19/JUN/2017?THE LAST INFUSION WAS ON 25/SEP/2018
     Route: 042
     Dates: start: 20150910
  34. QUETIAPINE. [Concomitant]
     Active Substance: QUETIAPINE
     Route: 065
  35. PREDNISONE. [Concomitant]
     Active Substance: PREDNISONE
     Route: 065
  36. TECNOMET [Concomitant]
     Active Substance: METHOTREXATE
     Route: 065
  37. ACETYLSALICYLIC ACID [Concomitant]
     Active Substance: ASPIRIN
  38. OMEPRAZOL [Concomitant]
     Active Substance: OMEPRAZOLE
     Indication: ABDOMINAL PAIN UPPER
  39. CYCLOBENZAPRINE. [Concomitant]
     Active Substance: CYCLOBENZAPRINE
     Indication: FIBROMYALGIA
     Route: 065
  40. BROMOPRIDE [Concomitant]
     Active Substance: BROMOPRIDE
     Dosage: 40 DROPS DAILY
     Route: 065
  41. PREDNISONE. [Concomitant]
     Active Substance: PREDNISONE
     Route: 065
  42. TECNOMET [Concomitant]
     Active Substance: METHOTREXATE
     Dosage: 2, 5 3 TABLETS ON MONDAY, AND 3 TABLETS ON TUESDAY FOR LUPUS
     Route: 065
  43. VELIJA [Concomitant]
     Active Substance: DULOXETINE HYDROCHLORIDE
     Indication: NEUROPATHY PERIPHERAL
     Route: 065
  44. ALLEGRA-D [Concomitant]
     Active Substance: FEXOFENADINE\PSEUDOEPHEDRINE
     Dosage: 3 DAYS BEFORE AND AFTER MABTHERA INFUSION
     Route: 065
  45. MABTHERA [Suspect]
     Active Substance: RITUXIMAB
     Indication: SYSTEMIC LUPUS ERYTHEMATOSUS
     Route: 042
     Dates: start: 201101
  46. OMEPRAZOL [Concomitant]
     Active Substance: OMEPRAZOLE
     Indication: GASTRIC DISORDER
  47. RIVOTRIL [Concomitant]
     Active Substance: CLONAZEPAM
     Route: 065

REACTIONS (17)
  - Sinusitis [Recovered/Resolved]
  - Throat tightness [Recovered/Resolved]
  - Hepatic function abnormal [Not Recovered/Not Resolved]
  - Headache [Unknown]
  - Influenza [Recovered/Resolved]
  - Renal cyst [Not Recovered/Not Resolved]
  - Nephrolithiasis [Unknown]
  - Nephrocalcinosis [Not Recovered/Not Resolved]
  - Muscular weakness [Recovering/Resolving]
  - Leiomyoma [Not Recovered/Not Resolved]
  - Haematuria [Recovering/Resolving]
  - Arrhythmia [Recovered/Resolved]
  - Headache [Not Recovered/Not Resolved]
  - Pain in extremity [Recovering/Resolving]
  - Formication [Unknown]
  - Furuncle [Not Recovered/Not Resolved]
  - Hepatic mass [Unknown]

NARRATIVE: CASE EVENT DATE: 20120602
